FAERS Safety Report 25494290 (Version 2)
Quarter: 2025Q4

REPORT INFORMATION
  Report Type: Spontaneous
  Country: US (occurrence: US)
  Receive Date: 20250630
  Receipt Date: 20251007
  Transmission Date: 20260119
  Serious: No
  Sender: FERRING
  Company Number: US-FERRINGPH-2025FE01851

PATIENT
  Age: 86 Year
  Sex: Male
  Weight: 120.18 kg

DRUGS (1)
  1. ADSTILADRIN [Suspect]
     Active Substance: NADOFARAGENE FIRADENOVEC-VNCG
     Indication: Product used for unknown indication
     Dosage: UNK
     Route: 065
     Dates: start: 20250410, end: 20250410

REACTIONS (1)
  - Instillation site discharge [Recovered/Resolved]

NARRATIVE: CASE EVENT DATE: 20250410
